FAERS Safety Report 21323892 (Version 1)
Quarter: 2022Q3

REPORT INFORMATION
  Report Type: Spontaneous
  Country: US (occurrence: None)
  Receive Date: 20220912
  Receipt Date: 20220912
  Transmission Date: 20221026
  Serious: Yes (Hospitalization)
  Sender: FDA-Public Use
  Company Number: None

PATIENT
  Age: 54 Year
  Sex: Male

DRUGS (1)
  1. GAMMAGARD LIQUID [Suspect]
     Active Substance: HUMAN IMMUNOGLOBULIN G
     Indication: Neuropathy peripheral
     Dosage: 110GM EVERY 3 WEEKS INTRAVENOUSLY?
     Route: 042
     Dates: start: 20211228

REACTIONS (2)
  - Asthenia [None]
  - Disease progression [None]

NARRATIVE: CASE EVENT DATE: 20220823
